FAERS Safety Report 5252756-6 (Version None)
Quarter: 2007Q1

REPORT INFORMATION
  Report Type: 
  Country: None (occurrence: None)
  Receive Date: 20070301
  Receipt Date: 20061128
  Transmission Date: 20070707
  Serious: No
  Sender: FDA-Public Use
  Company Number: US-GLAXOSMITHKLINE-A0628967A

PATIENT
  Age: 54 Year
  Sex: Male

DRUGS (7)
  1. LAMICTAL [Suspect]
     Indication: BIPOLAR DISORDER
     Dosage: 25MG PER DAY
     Route: 048
     Dates: start: 20061118
  2. SINGULAIR [Concomitant]
  3. PRAVACHOL [Concomitant]
  4. ZYPREXA [Concomitant]
  5. LEVOXYL [Concomitant]
  6. NEXIUM [Concomitant]
  7. TRILEPTAL [Concomitant]

REACTIONS (2)
  - DISABILITY [None]
  - DIZZINESS [None]
